FAERS Safety Report 13575880 (Version 2)
Quarter: 2018Q1

REPORT INFORMATION
  Report Type: Spontaneous
  Country: CA (occurrence: CA)
  Receive Date: 20170524
  Receipt Date: 20180122
  Transmission Date: 20180508
  Serious: Yes (Hospitalization, Other)
  Sender: FDA-Public Use
  Company Number: CA-AMGEN-CANSP2017077367

PATIENT
  Age: 40 Year
  Sex: Female

DRUGS (8)
  1. METHYLPREDNISOLONE. [Concomitant]
     Active Substance: METHYLPREDNISOLONE
     Dosage: 100 MG, UNK
     Route: 042
  2. FILGRASTIM [Suspect]
     Active Substance: FILGRASTIM
     Indication: PRODUCT USED FOR UNKNOWN INDICATION
     Dosage: UNK UNK, QD
     Route: 065
  3. OXYNEO [Concomitant]
     Active Substance: OXYCODONE
     Dosage: UNK
     Route: 065
  4. PREGABALIN. [Concomitant]
     Active Substance: PREGABALIN
     Dosage: UNK
     Route: 065
  5. RITUXAN [Suspect]
     Active Substance: RITUXIMAB
     Indication: NON-HODGKIN^S LYMPHOMA
     Dosage: 600 MG, QWK
     Route: 042
  6. DIPHENHYDRAMINE HYDROCHLORIDE. [Concomitant]
     Active Substance: DIPHENHYDRAMINE HYDROCHLORIDE
     Dosage: 50 MG, UNK
     Route: 048
  7. PREDNISONE. [Concomitant]
     Active Substance: PREDNISONE
     Dosage: UNK
  8. ACETAMINOPHEN. [Concomitant]
     Active Substance: ACETAMINOPHEN
     Dosage: 650 MG, UNK
     Route: 048

REACTIONS (9)
  - Blood count abnormal [Not Recovered/Not Resolved]
  - Pyrexia [Not Recovered/Not Resolved]
  - Sinusitis [Not Recovered/Not Resolved]
  - Aphthous ulcer [Not Recovered/Not Resolved]
  - Abdominal pain [Not Recovered/Not Resolved]
  - Heart rate increased [Not Recovered/Not Resolved]
  - Blood pressure increased [Not Recovered/Not Resolved]
  - Ankle fracture [Not Recovered/Not Resolved]
  - Heart rate irregular [Not Recovered/Not Resolved]
